FAERS Safety Report 9741280 (Version 1)
Quarter: 2013Q4

REPORT INFORMATION
  Report Type: Spontaneous
  Country: US (occurrence: US)
  Receive Date: 20131209
  Receipt Date: 20131209
  Transmission Date: 20140711
  Serious: No
  Sender: FDA-Public Use
  Company Number: US-BIOGENIDEC-2013BI102171

PATIENT
  Sex: Female

DRUGS (13)
  1. TECFIDERA [Suspect]
     Indication: PRODUCT USED FOR UNKNOWN INDICATION
     Route: 048
  2. EFFEXOR [Concomitant]
  3. ZOLOFT [Concomitant]
  4. MELOXICAM [Concomitant]
  5. GABAPENTIN [Concomitant]
  6. BACLOFEN [Concomitant]
  7. RESTORIL [Concomitant]
  8. B COMPLEX [Concomitant]
  9. ADDERALL [Concomitant]
  10. FISH OIL [Concomitant]
  11. CALCIUM + D [Concomitant]
  12. VITAMIN D3 [Concomitant]
  13. TRAMADOL HCL ER [Concomitant]

REACTIONS (2)
  - Rash generalised [Unknown]
  - Flushing [Unknown]
